FAERS Safety Report 7223961-4 (Version None)
Quarter: 2011Q1

REPORT INFORMATION
  Report Type: 
  Country: None (occurrence: None)
  Receive Date: 20110113
  Receipt Date: 20110106
  Transmission Date: 20110831
  Serious: No
  Sender: FDA-Public Use
  Company Number: US-BIOGENIDEC-2011BI000797

PATIENT
  Age: 38 Year
  Sex: Female

DRUGS (1)
  1. TYSABRI [Suspect]
     Indication: MULTIPLE SCLEROSIS
     Route: 042
     Dates: start: 20090723

REACTIONS (6)
  - BONE PAIN [None]
  - HYPERACUSIS [None]
  - PARAESTHESIA [None]
  - HYPOAESTHESIA [None]
  - PHOTOSENSITIVITY REACTION [None]
  - MOBILITY DECREASED [None]
